FAERS Safety Report 5675453-1 (Version None)
Quarter: 2008Q2

REPORT INFORMATION
  Report Type: 
  Country: None (occurrence: None)
  Receive Date: 20080311
  Receipt Date: 20071218
  Transmission Date: 20081010
  Serious: No
  Sender: FDA-Public Use
  Company Number: 002#1#2007-00371

PATIENT
  Age: 39 Year
  Sex: Male

DRUGS (3)
  1. NEUPRO [Suspect]
     Indication: PARKINSON'S DISEASE
     Dosage: 8MG/24H,1 IN 1 D,
     Dates: start: 20070801, end: 20071130
  2. SINEMET [Concomitant]
  3. ZELAPAR [Concomitant]

REACTIONS (2)
  - APPLICATION SITE REACTION [None]
  - CAUSTIC INJURY [None]
